FAERS Safety Report 6867534-1 (Version None)
Quarter: 2010Q3

REPORT INFORMATION
  Report Type: 
  Country: None (occurrence: None)
  Receive Date: 20100722
  Receipt Date: 20100713
  Transmission Date: 20110219
  Serious: Yes (Other)
  Sender: FDA-Public Use
  Company Number: US-JNJCH-2010016512

PATIENT
  Sex: Female

DRUGS (1)
  1. BENGAY PAIN RELIEVING PATCH [Suspect]
     Indication: PRODUCT USED FOR UNKNOWN INDICATION
     Dosage: TEXT:UNKNOWN
     Route: 061

REACTIONS (4)
  - BURNS SECOND DEGREE [None]
  - INJURY [None]
  - PAIN [None]
  - STRESS [None]
